FAERS Safety Report 6710743-2 (Version None)
Quarter: 2010Q2

REPORT INFORMATION
  Report Type: 
  Country: None (occurrence: None)
  Receive Date: 20100504
  Receipt Date: 20100504
  Transmission Date: 20101027
  Serious: Yes (Life-Threatening)
  Sender: FDA-Public Use
  Company Number: None

PATIENT
  Sex: Female
  Weight: 57.6068 kg

DRUGS (1)
  1. LEVAQUIN [Suspect]
     Indication: BRONCHITIS
     Dosage: 1 TABLET DAILY PO
     Route: 048
     Dates: start: 20091017, end: 20091023

REACTIONS (2)
  - HEPATITIS ACUTE [None]
  - JAUNDICE CHOLESTATIC [None]
